FAERS Safety Report 5836598-6 (Version None)
Quarter: 2008Q3

REPORT INFORMATION
  Report Type: 
  Country: None (occurrence: None)
  Receive Date: 20080807
  Receipt Date: 20080728
  Transmission Date: 20090109
  Serious: Yes (Other)
  Sender: FDA-Public Use
  Company Number: US-BAYER-200829320NA

PATIENT
  Sex: Male

DRUGS (5)
  1. MAGNEVIST [Suspect]
     Indication: ARTERIOGRAM CORONARY
  2. OMNISCAN [Suspect]
     Indication: ARTERIOGRAM CORONARY
  3. OPTIMARK [Suspect]
     Indication: ARTERIOGRAM CORONARY
  4. MULTIHANCE [Suspect]
     Indication: ARTERIOGRAM CORONARY
  5. PROHANCE [Suspect]
     Indication: ARTERIOGRAM CORONARY

REACTIONS (10)
  - ANXIETY [None]
  - EMOTIONAL DISTRESS [None]
  - GENERAL PHYSICAL HEALTH DETERIORATION [None]
  - INJURY [None]
  - MOBILITY DECREASED [None]
  - NEPHROGENIC SYSTEMIC FIBROSIS [None]
  - PAIN [None]
  - RASH MACULAR [None]
  - SKIN DISCOLOURATION [None]
  - SKIN INDURATION [None]
